FAERS Safety Report 5340745-2 (Version None)
Quarter: 2007Q2

REPORT INFORMATION
  Report Type: 
  Country: None (occurrence: None)
  Receive Date: 20070405
  Receipt Date: 20061207
  Transmission Date: 20071010
  Serious: No
  Sender: FDA-Public Use
  Company Number: US200612001606

PATIENT
  Sex: Male

DRUGS (6)
  1. CYMBALTA [Suspect]
     Dosage: 60 MG
     Dates: start: 20061103
  2. PERCOCET [Concomitant]
  3. SOMA [Concomitant]
  4. HYDROCHLOROTHIAZIDE [Concomitant]
  5. BENAZEPRIL (BENAZEPRIL) [Concomitant]
  6. AMITRIPTYLINE HCL [Concomitant]

REACTIONS (6)
  - CONSTIPATION [None]
  - DRUG INTERACTION [None]
  - DYSURIA [None]
  - NERVOUSNESS [None]
  - PALPITATIONS [None]
  - TREMOR [None]
